FAERS Safety Report 4692628-9 (Version None)
Quarter: 2005Q2

REPORT INFORMATION
  Report Type: 
  Country: None (occurrence: None)
  Receive Date: 20050617
  Receipt Date: 20050606
  Transmission Date: 20051028
  Serious: Yes (Hospitalization)
  Sender: FDA-Public Use
  Company Number: US-MERCK-0506USA00912

PATIENT
  Age: 58 Year
  Sex: Female

DRUGS (3)
  1. VIOXX [Suspect]
     Indication: BACK PAIN
     Route: 048
  2. EFFEXOR [Concomitant]
     Route: 048
  3. ALEVE [Concomitant]
     Route: 048

REACTIONS (2)
  - GASTRIC ULCER [None]
  - RECTAL HAEMORRHAGE [None]
